FAERS Safety Report 18452917 (Version 1)
Quarter: 2020Q4

REPORT INFORMATION
  Report Type: Spontaneous
  Country: US (occurrence: US)
  Receive Date: 20201102
  Receipt Date: 20201102
  Transmission Date: 20210114
  Serious: Yes (Other)
  Sender: FDA-Public Use
  Company Number: US-GW PHARMA-202010USGW03652

PATIENT

DRUGS (1)
  1. EPIDIOLEX [Suspect]
     Active Substance: CANNABIDIOL
     Indication: ILLNESS
     Dosage: TAKE 100 MG AS NEEDED 1 TO 2 TIMES PER DAY (FIRST SHIPPED ON 06 MAR 2019)
     Route: 048
     Dates: start: 201903

REACTIONS (4)
  - Illness [Not Recovered/Not Resolved]
  - Product use in unapproved indication [Unknown]
  - Feeling abnormal [Not Recovered/Not Resolved]
  - Intentional product use issue [Unknown]
